FAERS Safety Report 7285952-7 (Version None)
Quarter: 2011Q1

REPORT INFORMATION
  Report Type: 
  Country: None (occurrence: None)
  Receive Date: 20110210
  Receipt Date: 20101020
  Transmission Date: 20110831
  Serious: No
  Sender: FDA-Public Use
  Company Number: US-BAYER-201022842BCC

PATIENT

DRUGS (1)
  1. FINACEA [Suspect]

REACTIONS (2)
  - ERYTHEMA [None]
  - SKIN DISORDER [None]
